FAERS Safety Report 6133884-X (Version None)
Quarter: 2009Q1

REPORT INFORMATION
  Report Type: 
  Country: None (occurrence: None)
  Receive Date: 20090326
  Receipt Date: 20090325
  Transmission Date: 20090719
  Serious: Yes (Other)
  Sender: FDA-Public Use
  Company Number: GB-BRISTOL-MYERS SQUIBB COMPANY-14554364

PATIENT
  Age: 38 Year
  Sex: Female

DRUGS (13)
  1. EFAVIRENZ [Suspect]
     Indication: HIV INFECTION
     Route: 065
  2. DIDANOSINE [Suspect]
     Indication: HIV INFECTION
     Route: 065
  3. DARUNAVIR [Suspect]
     Indication: HIV INFECTION
     Route: 065
  4. ENFUVIRTIDE [Suspect]
     Indication: HIV INFECTION
     Route: 058
  5. ETRAVIRINE [Suspect]
     Indication: HIV INFECTION
     Route: 065
  6. LAMIVUDINE [Suspect]
     Indication: HIV INFECTION
     Route: 065
  7. LOPINAVIR [Suspect]
     Indication: HIV INFECTION
     Route: 065
  8. NELFINAVIR [Suspect]
     Indication: HIV INFECTION
     Route: 065
  9. NEVIRAPINE [Suspect]
     Indication: HIV INFECTION
     Route: 065
  10. RITONAVIR [Suspect]
     Indication: HIV INFECTION
     Route: 065
  11. TENOFOVIR [Suspect]
     Indication: HIV INFECTION
     Route: 065
  12. TRUVADA [Suspect]
     Indication: HIV INFECTION
     Route: 065
  13. ZIDOVUDINE [Suspect]
     Indication: HIV INFECTION
     Route: 065

REACTIONS (7)
  - ANAEMIA [None]
  - BLOOD TRIGLYCERIDES INCREASED [None]
  - DRUG RESISTANCE [None]
  - HEPATIC FUNCTION ABNORMAL [None]
  - INJECTION SITE REACTION [None]
  - NORMAL NEWBORN [None]
  - PREGNANCY [None]
